FAERS Safety Report 4446768-X (Version None)
Quarter: 2004Q3

REPORT INFORMATION
  Report Type: 
  Country: None (occurrence: None)
  Receive Date: 20040910
  Receipt Date: 20040901
  Transmission Date: 20050211
  Serious: No
  Sender: FDA-Public Use
  Company Number: TAP2004Q01081

PATIENT
  Age: 35 Year
  Sex: Male

DRUGS (3)
  1. PREVACID [Suspect]
     Indication: GASTROOESOPHAGEAL REFLUX DISEASE
     Dosage: PER ORAL
     Route: 048
     Dates: end: 20040813
  2. UNSPECIFIED HIGH BLOOD PRESSURE MEDICATION [Concomitant]
  3. UNSPECIFIED PAIN MEDICATION FOR HEADAHCE [Concomitant]

REACTIONS (5)
  - DYSGEUSIA [None]
  - HYPOAESTHESIA [None]
  - PARAESTHESIA [None]
  - PARAESTHESIA ORAL [None]
  - VISION BLURRED [None]
